FAERS Safety Report 5746039-5 (Version None)
Quarter: 2008Q2

REPORT INFORMATION
  Report Type: 
  Country: None (occurrence: None)
  Receive Date: 20080522
  Receipt Date: 20080513
  Transmission Date: 20081010
  Serious: Yes (Other)
  Sender: FDA-Public Use
  Company Number: HQWYE322822JUL04

PATIENT
  Sex: Female

DRUGS (3)
  1. PREMPRO [Suspect]
     Indication: HORMONE REPLACEMENT THERAPY
  2. PROGESTERONE [Suspect]
  3. PREMARIN [Suspect]

REACTIONS (5)
  - ARTHROPATHY [None]
  - BREAST CANCER METASTATIC [None]
  - LYMPHOEDEMA [None]
  - METASTASES TO LYMPH NODES [None]
  - NERVE INJURY [None]
